FAERS Safety Report 5600304-0 (Version None)
Quarter: 2007Q4

REPORT INFORMATION
  Report Type: 
  Country: None (occurrence: None)
  Receive Date: 20071226
  Receipt Date: 20061213
  Transmission Date: 20080405
  Serious: Yes (Life-Threatening)
  Sender: FDA-Public Use
  Company Number: 233480

PATIENT
  Age: 54 Year
  Sex: Female
  Weight: 57 kg

DRUGS (5)
  1. RAPTIVA [Suspect]
     Indication: PSORIASIS
     Dosage: 57 MG, 1/WEEK, SUBCUTANEOUS
     Route: 058
     Dates: start: 20060626
  2. SYNTHROID [Concomitant]
  3. WELLUTRIN (BUPROPION HYDROCHLORIDE) [Concomitant]
  4. FOSAMAX [Concomitant]
  5. ALBUTEROL (ALBUTEROL.ALBUTEROL SULFATE) [Concomitant]

REACTIONS (1)
  - PLATELET COUNT DECREASED [None]
